FAERS Safety Report 23649036 (Version 6)
Quarter: 2024Q2

REPORT INFORMATION
  Report Type: Spontaneous
  Country: FR (occurrence: FR)
  Receive Date: 20240319
  Receipt Date: 20240524
  Transmission Date: 20240715
  Serious: Yes (Other)
  Sender: FDA-Public Use
  Company Number: FR-BRISTOL-MYERS SQUIBB COMPANY-2024-037329

PATIENT
  Age: 59 Year
  Sex: Male

DRUGS (2)
  1. IPILIMUMAB [Suspect]
     Active Substance: IPILIMUMAB
     Indication: Renal disorder
  2. NIVOLUMAB [Suspect]
     Active Substance: NIVOLUMAB
     Indication: Renal disorder

REACTIONS (22)
  - Peripheral sensory neuropathy [Recovered/Resolved]
  - Dry skin [Unknown]
  - Arthralgia [Not Recovered/Not Resolved]
  - Dizziness postural [Unknown]
  - Pruritus [Recovered/Resolved]
  - Vision blurred [Unknown]
  - Decreased appetite [Unknown]
  - Fatigue [Not Recovered/Not Resolved]
  - Dry mouth [Unknown]
  - Saliva altered [Unknown]
  - Headache [Unknown]
  - Myalgia [Recovered/Resolved]
  - Vertigo [Not Recovered/Not Resolved]
  - Chills [Not Recovered/Not Resolved]
  - Diarrhoea [Unknown]
  - Confusional state [Unknown]
  - Chest pain [Unknown]
  - Weight decreased [Unknown]
  - Nausea [Unknown]
  - Vomiting [Unknown]
  - Cough [Unknown]
  - Dyspnoea [Unknown]
